FAERS Safety Report 8152659-3 (Version None)
Quarter: 2012Q1

REPORT INFORMATION
  Report Type: 
  Country: None (occurrence: None)
  Receive Date: 20120221
  Receipt Date: 20120210
  Transmission Date: 20120608
  Serious: Yes (Other)
  Sender: FDA-Public Use
  Company Number: PHHY2012BR007643

PATIENT
  Sex: Male

DRUGS (5)
  1. LOSARTAN POTASSIUM [Concomitant]
     Indication: BLOOD PRESSURE
     Dosage: 100 MG, UNK
  2. KETOPROFEN [Concomitant]
     Dosage: 150 MG, BID
  3. LEVOFLOXACIN [Suspect]
     Indication: COUGH
     Dosage: 500 MG, QD
     Route: 048
     Dates: start: 20111212
  4. ATENOLOL CHLORTHALIDONE ^BIOCHEMIE^ [Concomitant]
     Indication: BLOOD PRESSURE
  5. CLONAZEPAM [Concomitant]
     Dosage: 5 DRP, UNK

REACTIONS (5)
  - PAIN IN EXTREMITY [None]
  - HAEMATOMA [None]
  - BACK PAIN [None]
  - COUGH [None]
  - MUSCLE RUPTURE [None]
